FAERS Safety Report 8332246-4 (Version None)
Quarter: 2012Q2

REPORT INFORMATION
  Report Type: 
  Country: None (occurrence: None)
  Receive Date: 20120503
  Receipt Date: 20120424
  Transmission Date: 20120825
  Serious: No
  Sender: FDA-Public Use
  Company Number: US-BIOGENIDEC-2012BI014363

PATIENT
  Age: 37 Year
  Sex: Female

DRUGS (4)
  1. TYSABRI [Suspect]
     Indication: MULTIPLE SCLEROSIS
     Route: 042
     Dates: start: 20081105
  2. AVONEX [Concomitant]
     Indication: MULTIPLE SCLEROSIS
     Route: 030
     Dates: start: 20000410
  3. AVONEX [Concomitant]
     Route: 030
  4. AVONEX [Concomitant]
     Route: 030
     Dates: start: 20090201

REACTIONS (3)
  - PARAESTHESIA [None]
  - TOOTH EXTRACTION [None]
  - TOOTH INFECTION [None]
